FAERS Safety Report 4414287-2 (Version None)
Quarter: 2004Q2

REPORT INFORMATION
  Report Type: 
  Country: None (occurrence: None)
  Receive Date: 20040630
  Receipt Date: 20040518
  Transmission Date: 20050107
  Serious: No
  Sender: FDA-Public Use
  Company Number: 04P-163-0261111-00

PATIENT
  Age: 47 Year
  Sex: Female
  Weight: 70.3075 kg

DRUGS (10)
  1. HUMIRA [Suspect]
     Indication: RHEUMATOID ARTHRITIS
     Dosage: 40 MG, 1 IN 2 WK, SUBCUTANEOUS
     Route: 058
     Dates: start: 20040401, end: 20040401
  2. METHOTREXATE [Concomitant]
  3. PREDNISONE TAB [Concomitant]
  4. NIFEDIPINE [Concomitant]
  5. ANOVLAR [Concomitant]
  6. PAROXETINE HYDRROCHLORIDE [Concomitant]
  7. PARACETAMOL [Concomitant]
  8. FOLIC ACID [Concomitant]
  9. MULTI-VITAMINS [Concomitant]
  10. CALCIUM [Concomitant]

REACTIONS (1)
  - CYSTITIS [None]
